FAERS Safety Report 5726633-8 (Version None)
Quarter: 2008Q2

REPORT INFORMATION
  Report Type: 
  Country: None (occurrence: None)
  Receive Date: 20080502
  Receipt Date: 20080502
  Transmission Date: 20081010
  Serious: Yes (Life-Threatening, Hospitalization)
  Sender: FDA-Public Use
  Company Number: FR-RB-000610-08

PATIENT
  Sex: Male

DRUGS (3)
  1. SUBUTEX [Suspect]
     Route: 060
     Dates: start: 20050101
  2. OXAZEPAM [Suspect]
     Indication: DRUG USE FOR UNKNOWN INDICATION
     Dosage: 50MG TAKEN UNKNOW FREQUENCY
     Route: 048
     Dates: start: 20080115
  3. RISPERDAL [Suspect]
     Indication: IMPULSIVE BEHAVIOUR
     Dosage: 8MG TAKEN UNKNOWN FREQUENCY
     Route: 048
     Dates: start: 20080115

REACTIONS (3)
  - DRUG TOXICITY [None]
  - RESPIRATORY DEPRESSION [None]
  - SUICIDE ATTEMPT [None]
